FAERS Safety Report 9557660 (Version 1)
Quarter: 2013Q3

REPORT INFORMATION
  Report Type: Spontaneous
  Country: US (occurrence: None)
  Receive Date: 20130726
  Receipt Date: 20130726
  Transmission Date: 20140515
  Serious: Yes (Hospitalization)
  Sender: FDA-Public Use
  Company Number: UTC-029222

PATIENT
  Age: 38 Year
  Sex: Female
  Weight: 139.5 kg

DRUGS (2)
  1. REMODULIN (2.5 MILLIGRAM/MILLITERS, INJECTION FOR INFUSION) (TRESPROSTINIL SODIUM) [Suspect]
     Indication: PULMONARY ARTERIAL HYPERTENSION
     Dosage: 69.12 UG/KG (0.048 UG/KG, 1 IN 1 MIN)
     Route: 041
     Dates: start: 20120706
  2. COUMADIN(WARFARIN SODIUM) [Concomitant]

REACTIONS (1)
  - Injection site infection [None]
